FAERS Safety Report 9173371 (Version 1)
Quarter: 2013Q1

REPORT INFORMATION
  Report Type: Spontaneous
  Country: GB (occurrence: None)
  Receive Date: 20130314
  Receipt Date: 20130314
  Transmission Date: 20140127
  Serious: Yes (Other)
  Sender: FDA-Public Use
  Company Number: AUR-APL-2013-02053

PATIENT
  Age: 27 Year
  Sex: Female

DRUGS (1)
  1. SERTRALINE [Suspect]
     Indication: ANXIETY DISORDER
     Dosage: (50 MG, 1 IN 1 D), UNKNOWN
     Dates: start: 20120212, end: 20120214

REACTIONS (4)
  - Loss of consciousness [None]
  - Loss of consciousness [None]
  - Fall [None]
  - Crying [None]
